FAERS Safety Report 20581582 (Version 1)
Quarter: 2022Q1

REPORT INFORMATION
  Report Type: Spontaneous
  Country: US (occurrence: US)
  Receive Date: 20220311
  Receipt Date: 20220311
  Transmission Date: 20220423
  Serious: Yes (Other)
  Sender: FDA-Public Use
  Company Number: US-CATALENT PHARMA SOLUTIONS-CAT-000013-2022

PATIENT
  Age: 6 Year
  Sex: Male
  Weight: 30.8 kg

DRUGS (2)
  1. VALPROIC ACID [Suspect]
     Active Substance: VALPROIC ACID
     Indication: Seizure
     Dosage: 800 MILLIGRAM DAILY VIA GASTROSTOMY TUBE
     Route: 050
  2. VALPROIC ACID [Suspect]
     Active Substance: VALPROIC ACID
     Dosage: UNK, REDUCED DOSE
     Route: 050

REACTIONS (3)
  - Acute kidney injury [Not Recovered/Not Resolved]
  - Fanconi syndrome [Not Recovered/Not Resolved]
  - Incorrect route of product administration [Not Recovered/Not Resolved]
